FAERS Safety Report 6634913-7 (Version None)
Quarter: 2010Q1

REPORT INFORMATION
  Report Type: 
  Country: None (occurrence: None)
  Receive Date: 20100315
  Receipt Date: 20100311
  Transmission Date: 20100710
  Serious: Yes (Death, Other)
  Sender: FDA-Public Use
  Company Number: US-PURDUE-USA-2010-0042584

PATIENT
  Sex: Male

DRUGS (4)
  1. RYZOLT [Suspect]
     Indication: DRUG USE FOR UNKNOWN INDICATION
     Dosage: 600 MG, DAILY
     Dates: start: 20100212
  2. COMPAZINE [Concomitant]
     Indication: NAUSEA
     Dosage: 10 MG, Q6- 8H
  3. PHENERGAN                          /00033002/ [Concomitant]
     Indication: COUGH
     Dosage: 2 TSP, Q6H
  4. CYMBALTA [Concomitant]
     Indication: DEPRESSION
     Dosage: 60 MG, BID

REACTIONS (2)
  - DEATH [None]
  - PNEUMONIA [None]
